FAERS Safety Report 10017893 (Version 1)
Quarter: 2014Q1

REPORT INFORMATION
  Report Type: Spontaneous
  Country: US (occurrence: US)
  Receive Date: 20140318
  Receipt Date: 20140318
  Transmission Date: 20141002
  Serious: No
  Sender: FDA-Public Use
  Company Number: US-BRISTOL-MYERS SQUIBB COMPANY-18862219

PATIENT
  Age: 45 Year
  Sex: Female
  Weight: 63.04 kg

DRUGS (1)
  1. ERBITUX [Suspect]
     Indication: COLON CANCER
     Dosage: WEEKLY FOR 3 WEEKS THEN RESTS A WEEK. SHE HAS HAD 6 INFUSIONNS.STARTED ERBITUX 1.5 MONTHS AGO

REACTIONS (3)
  - Dermatitis acneiform [Not Recovered/Not Resolved]
  - Dry skin [Unknown]
  - Skin fissures [Unknown]
